FAERS Safety Report 4393439-4 (Version None)
Quarter: 2004Q3

REPORT INFORMATION
  Report Type: 
  Country: None (occurrence: None)
  Receive Date: 20040701
  Receipt Date: 20040623
  Transmission Date: 20050211
  Serious: Yes (Hospitalization)
  Sender: FDA-Public Use
  Company Number: PL-JNJFOC-20040606063

PATIENT
  Age: 64 Year
  Sex: Female
  Weight: 84 kg

DRUGS (7)
  1. REOPRO [Suspect]
     Indication: CORONARY ARTERY DISEASE
     Dosage: INTRAVENOUS
     Route: 042
     Dates: start: 20040617, end: 20040617
  2. UNFRACTIONATED HEPARIN (HEPARIN) [Concomitant]
  3. CLOPIDOGREL (CLOPIDOGREL) [Concomitant]
  4. ACETYLSALICYLIC ACID SRT [Concomitant]
  5. SIMVASTATIN [Concomitant]
  6. GLICLAZIDE (GLICLAZIDE) [Concomitant]
  7. ENALAPRIL MALEATE [Concomitant]

REACTIONS (5)
  - ARTERIAL RUPTURE [None]
  - HAEMATOCRIT DECREASED [None]
  - HAEMOGLOBIN DECREASED [None]
  - HYPOVOLAEMIC SHOCK [None]
  - RED BLOOD CELL COUNT DECREASED [None]
